FAERS Safety Report 4660959-4 (Version None)
Quarter: 2005Q2

REPORT INFORMATION
  Report Type: 
  Country: None (occurrence: None)
  Receive Date: 20050511
  Receipt Date: 20050429
  Transmission Date: 20051028
  Serious: Yes (Hospitalization, Other)
  Sender: FDA-Public Use
  Company Number: KII-2005-0016461

PATIENT
  Age: 35 Year
  Sex: Female

DRUGS (7)
  1. OXYCODONE HCL [Suspect]
     Dosage: ORAL
     Route: 048
  2. CARISOPRODOL [Suspect]
     Dosage: ORAL
     Route: 048
  3. ALPRAZOLAM [Suspect]
     Dosage: ORAL
     Route: 048
  4. TAMOXIFEN (TAMOXIFEN) [Suspect]
     Dosage: ORAL
     Route: 048
  5. TETRAHYDROCANNABINOL (TETRAHYDROCANNABINOL) [Suspect]
  6. ASPIRIN [Suspect]
  7. ACETAMINOPHEN [Suspect]

REACTIONS (9)
  - AGGRESSION [None]
  - AGITATION [None]
  - BLOOD CREATINE PHOSPHOKINASE INCREASED [None]
  - COMA [None]
  - DRUG ABUSER [None]
  - DRUG SCREEN POSITIVE [None]
  - HYPERTENSION [None]
  - MULTIPLE DRUG OVERDOSE [None]
  - URINE OUTPUT DECREASED [None]
